FAERS Safety Report 8776747 (Version 1)
Quarter: 2012Q4

REPORT INFORMATION
  Report Type: 
  Country: US (occurrence: US)
  Receive Date: 20120910
  Receipt Date: 20120910
  Transmission Date: 20130627
  Serious: No
  Sender: FDA-Public Use
  Company Number: US-B.I. PHARMACEUTICALS,INC./RIDGEFIELD-2012-BP-21464BP

PATIENT
  Age: 58 None
  Sex: Male
  Weight: 105 kg

DRUGS (15)
  1. SPIRIVA [Suspect]
     Indication: CHRONIC OBSTRUCTIVE PULMONARY DISEASE
     Dosage: 18 mcg
     Route: 055
     Dates: start: 201206
  2. ALLEGRA [Concomitant]
     Indication: NASAL CONGESTION
     Route: 048
  3. LYRICA [Concomitant]
     Indication: PAIN
     Route: 048
  4. FENTANYL PATH [Concomitant]
     Indication: PAIN
  5. OXYCODONE [Concomitant]
     Indication: PAIN
     Route: 048
  6. TYLENOL [Concomitant]
     Indication: PAIN
     Route: 048
  7. XANAX [Concomitant]
     Indication: NERVOUS SYSTEM DISORDER
     Route: 048
  8. JANUVIA [Concomitant]
     Indication: DIABETES MELLITUS
     Route: 048
  9. ZETIA [Concomitant]
     Indication: BLOOD CHOLESTEROL ABNORMAL
     Route: 048
  10. FLONASE [Concomitant]
     Indication: NASAL CONGESTION
     Route: 048
  11. ZYRTEC [Concomitant]
     Indication: NASAL CONGESTION
     Route: 048
  12. ASPIRIN [Concomitant]
     Indication: PAIN
     Route: 048
  13. ASPIRIN [Concomitant]
     Indication: THROMBOSIS
  14. PROVIGIL [Concomitant]
     Indication: SOMNOLENCE
     Route: 048
  15. PRISTIQ [Concomitant]

REACTIONS (3)
  - Tooth infection [Not Recovered/Not Resolved]
  - Dry mouth [Not Recovered/Not Resolved]
  - Oropharyngeal pain [Not Recovered/Not Resolved]
